FAERS Safety Report 4455622-9 (Version None)
Quarter: 2004Q3

REPORT INFORMATION
  Report Type: 
  Country: None (occurrence: None)
  Receive Date: 20040917
  Receipt Date: 20040914
  Transmission Date: 20050211
  Serious: Yes (Hospitalization, Other)
  Sender: FDA-Public Use
  Company Number: 2004-09-0180

PATIENT
  Age: 60 Year
  Sex: Male

DRUGS (1)
  1. AERIUS (DESLORATADINE) TABLETS ' LIKE CLARINEX' [Suspect]
     Indication: URTICARIA
     Dosage: 5 MG QD ORAL
     Route: 048
     Dates: start: 20040902, end: 20040902

REACTIONS (1)
  - GRAND MAL CONVULSION [None]
